FAERS Safety Report 5623541-8 (Version None)
Quarter: 2008Q1

REPORT INFORMATION
  Report Type: 
  Country: None (occurrence: None)
  Receive Date: 20080129
  Receipt Date: 20070703
  Transmission Date: 20080703
  Serious: Yes (Life-Threatening, Hospitalization)
  Sender: FDA-Public Use
  Company Number: WAES 0707USA00629

PATIENT
  Sex: Female

DRUGS (1)
  1. INVANZ [Suspect]
     Dosage: 1 GM, IV
     Route: 042

REACTIONS (3)
  - CONVULSION [None]
  - OVERDOSE [None]
  - RENAL IMPAIRMENT [None]
